FAERS Safety Report 8375732-3 (Version None)
Quarter: 2012Q2

REPORT INFORMATION
  Report Type: 
  Country: None (occurrence: None)
  Receive Date: 20120517
  Receipt Date: 20120517
  Transmission Date: 20120825
  Serious: Yes (Hospitalization)
  Sender: FDA-Public Use
  Company Number: None

PATIENT
  Age: 58 Year
  Sex: Male
  Weight: 106.2 kg

DRUGS (1)
  1. QUETIAPINE [Suspect]
     Indication: SCHIZOPHRENIA, PARANOID TYPE
     Dosage: 200 MG AT BEDTIME PO
     Route: 048
     Dates: start: 20120502, end: 20120502

REACTIONS (4)
  - TONGUE DISORDER [None]
  - DYSPHAGIA [None]
  - ANGIOEDEMA [None]
  - FATIGUE [None]
